FAERS Safety Report 16697890 (Version 2)
Quarter: 2019Q3

REPORT INFORMATION
  Report Type: Not Available
  Country: US (occurrence: US)
  Receive Date: 20190813
  Receipt Date: 20190910
  Transmission Date: 20191004
  Serious: No
  Sender: FDA-Public Use
  Company Number: US-NEUROCRINE BIOSCIENCES INC.-2019NBI02176

PATIENT
  Sex: Male

DRUGS (2)
  1. INGREZZA [Suspect]
     Active Substance: VALBENAZINE
     Indication: TARDIVE DYSKINESIA
     Route: 048
     Dates: start: 20171013, end: 20171020
  2. INGREZZA [Suspect]
     Active Substance: VALBENAZINE
     Dosage: 40 MG 2 CAPSULES
     Route: 048
     Dates: start: 20171021

REACTIONS (2)
  - Therapeutic product effect incomplete [None]
  - Intentional product use issue [Unknown]
